FAERS Safety Report 6330835-X (Version None)
Quarter: 2009Q3

REPORT INFORMATION
  Report Type: 
  Country: None (occurrence: None)
  Receive Date: 20090827
  Receipt Date: 20090826
  Transmission Date: 20100115
  Serious: Yes (Hospitalization)
  Sender: FDA-Public Use
  Company Number: AU-B.I. PHARMACEUTICALS,INC./RIDGEFIELD-2009-AU-00386AU

PATIENT
  Sex: Female
  Weight: 61 kg

DRUGS (6)
  1. MICARDIS [Suspect]
     Indication: HYPERTENSION
     Dosage: 80 MG
     Route: 048
     Dates: start: 20061206, end: 20090512
  2. PREDNISONE TAB [Concomitant]
  3. VASOCARDOL [Concomitant]
     Route: 048
     Dates: start: 20040101
  4. ACETAMINOPHEN [Concomitant]
     Dates: start: 20080101
  5. SOMAC [Concomitant]
     Route: 048
     Dates: start: 20060101
  6. TEMAZE [Concomitant]
     Dates: start: 20050101

REACTIONS (1)
  - ANAPHYLACTIC REACTION [None]
